FAERS Safety Report 4486348-3 (Version None)
Quarter: 2004Q4

REPORT INFORMATION
  Report Type: 
  Country: None (occurrence: None)
  Receive Date: 20041021
  Receipt Date: 20040929
  Transmission Date: 20050328
  Serious: No
  Sender: FDA-Public Use
  Company Number: A04200400910

PATIENT
  Sex: 0

DRUGS (2)
  1. PLAVIX [Suspect]
     Dosage: 75 MG OD, ORAL
     Route: 048
     Dates: start: 20010201
  2. LIPOBAY - (CERIVASTATIN SODIUM) - TABLET [Suspect]
     Dosage: ORAL
     Route: 048
     Dates: start: 20010201

REACTIONS (2)
  - DRUG INTERACTION [None]
  - RHABDOMYOLYSIS [None]
